FAERS Safety Report 9215211 (Version 3)
Quarter: 2013Q4

REPORT INFORMATION
  Report Type: Spontaneous
  Country: GB (occurrence: GB)
  Receive Date: 20130405
  Receipt Date: 20131120
  Transmission Date: 20140711
  Serious: Yes (Hospitalization, Other)
  Sender: FDA-Public Use
  Company Number: GB-MYLANLABS-2013S1006753

PATIENT
  Age: 71 Year
  Sex: Female
  Weight: 57 kg

DRUGS (19)
  1. SIMVASTATIN [Suspect]
     Indication: INFECTION
  2. CUBICIN [Suspect]
     Indication: ARTHRITIS INFECTIVE
     Route: 042
     Dates: start: 20130306, end: 20130310
  3. ASPIRIN [Concomitant]
     Indication: PRODUCT USED FOR UNKNOWN INDICATION
  4. BENDROFLUAZIDE [Concomitant]
     Indication: PRODUCT USED FOR UNKNOWN INDICATION
  5. CHLORPHENAMINE [Concomitant]
     Indication: PRODUCT USED FOR UNKNOWN INDICATION
  6. CIPROFLOXACIN [Concomitant]
     Indication: PRODUCT USED FOR UNKNOWN INDICATION
  7. CO-CODAMOL [Concomitant]
     Indication: PRODUCT USED FOR UNKNOWN INDICATION
  8. CYCLIZINE [Concomitant]
     Indication: PRODUCT USED FOR UNKNOWN INDICATION
  9. ENOXAPARIN [Concomitant]
     Indication: PRODUCT USED FOR UNKNOWN INDICATION
  10. GENTAMICIN [Concomitant]
     Indication: PRODUCT USED FOR UNKNOWN INDICATION
  11. MOMETASONE FUROATE [Concomitant]
     Indication: PRODUCT USED FOR UNKNOWN INDICATION
  12. MORPHINE SULFATE [Concomitant]
     Indication: PRODUCT USED FOR UNKNOWN INDICATION
  13. OMEPRAZOLE [Concomitant]
     Indication: PRODUCT USED FOR UNKNOWN INDICATION
  14. ONDANSETRON [Concomitant]
     Indication: PRODUCT USED FOR UNKNOWN INDICATION
  15. PARACETAMOL [Concomitant]
     Indication: PRODUCT USED FOR UNKNOWN INDICATION
  16. RIFAMPICIN [Concomitant]
     Indication: PRODUCT USED FOR UNKNOWN INDICATION
  17. SANDO K [Concomitant]
     Indication: PRODUCT USED FOR UNKNOWN INDICATION
  18. TRAMADOL [Concomitant]
     Indication: PRODUCT USED FOR UNKNOWN INDICATION
  19. VANCOMYCIN [Concomitant]
     Indication: PRODUCT USED FOR UNKNOWN INDICATION

REACTIONS (3)
  - Atrial fibrillation [Unknown]
  - Blood creatine phosphokinase increased [Unknown]
  - Tachycardia [Recovering/Resolving]
